FAERS Safety Report 19228161 (Version 2)
Quarter: 2022Q3

REPORT INFORMATION
  Report Type: Report from Study
  Country: US (occurrence: US)
  Receive Date: 20210507
  Receipt Date: 20220708
  Transmission Date: 20221026
  Serious: No
  Sender: FDA-Public Use
  Company Number: US-SA-SAC20210505000261

PATIENT
  Age: 33 Year
  Sex: Female

DRUGS (6)
  1. AUBAGIO [Suspect]
     Active Substance: TERIFLUNOMIDE
     Indication: Multiple sclerosis
     Dosage: UNK
     Route: 048
     Dates: start: 20210406
  2. AUBAGIO [Suspect]
     Active Substance: TERIFLUNOMIDE
     Dosage: 14 MG, QD
     Route: 048
     Dates: start: 20210415
  3. AUBAGIO [Suspect]
     Active Substance: TERIFLUNOMIDE
     Dosage: 7 MG, QD
     Route: 048
     Dates: start: 2021
  4. VITAMINS [Concomitant]
     Active Substance: VITAMINS
  5. EMGALITY [Concomitant]
     Active Substance: GALCANEZUMAB-GNLM
  6. AMITRIPTYLINE [Concomitant]
     Active Substance: AMITRIPTYLINE
     Indication: Prophylaxis

REACTIONS (7)
  - Abdominal pain [Unknown]
  - Constipation [Unknown]
  - Migraine [Unknown]
  - Neck pain [Unknown]
  - Acne [Unknown]
  - Abdominal pain upper [Recovered/Resolved]
  - Headache [Unknown]
